FAERS Safety Report 7055491-7 (Version None)
Quarter: 2010Q4

REPORT INFORMATION
  Report Type: 
  Country: None (occurrence: None)
  Receive Date: 20101021
  Receipt Date: 20101012
  Transmission Date: 20110411
  Serious: Yes (Hospitalization)
  Sender: FDA-Public Use
  Company Number: JP-ASTRAZENECA-2010SE48967

PATIENT
  Age: 75 Year
  Sex: Female
  Weight: 53 kg

DRUGS (3)
  1. ECARD HD [Suspect]
     Indication: HYPERTENSION
     Route: 048
     Dates: start: 20090903
  2. CARNACULIN [Concomitant]
     Indication: CEREBRAL CIRCULATORY FAILURE
     Route: 048
     Dates: start: 20090116, end: 20090907
  3. CARNACULIN [Concomitant]
     Route: 048

REACTIONS (1)
  - CHEST DISCOMFORT [None]
